FAERS Safety Report 9795991 (Version 4)
Quarter: 2014Q1

REPORT INFORMATION
  Report Type: Spontaneous
  Country: US (occurrence: US)
  Receive Date: 20140103
  Receipt Date: 20140207
  Transmission Date: 20141002
  Serious: Yes (Hospitalization, Other)
  Sender: FDA-Public Use
  Company Number: US-VERTEX PHARMACEUTICALS INC-2013-012097

PATIENT
  Age: 40 Year
  Sex: Male
  Weight: 63.49 kg

DRUGS (6)
  1. INCIVEK [Suspect]
     Indication: HEPATITIS C
     Dosage: 2 DF, TID
     Route: 048
     Dates: start: 20131025
  2. INCIVEK [Suspect]
     Dosage: 2 DF, TID
     Route: 048
     Dates: start: 201312, end: 20140116
  3. RIBASPHERE [Suspect]
     Indication: HEPATITIS C
     Dosage: 600 MG AM, 400 MG PM
     Route: 048
     Dates: start: 20131025
  4. PEGASYS [Suspect]
     Indication: HEPATITIS C
     Dosage: 180 ?G, QW
     Route: 058
     Dates: start: 20131025
  5. ZOFRAN [Concomitant]
     Route: 048
  6. ZANTAC [Concomitant]
     Route: 048

REACTIONS (22)
  - Gastrointestinal disorder [Unknown]
  - Cerebrovascular accident [Unknown]
  - Anorectal disorder [Recovered/Resolved]
  - Hepatic pain [Recovered/Resolved]
  - Back pain [Recovered/Resolved]
  - Thrombosis [Unknown]
  - Pruritus [Recovering/Resolving]
  - Chest pain [Unknown]
  - Depression [Not Recovered/Not Resolved]
  - Dermatitis allergic [Not Recovered/Not Resolved]
  - Emotional distress [Not Recovered/Not Resolved]
  - Enzyme level increased [Unknown]
  - Lethargy [Not Recovered/Not Resolved]
  - Crying [Not Recovered/Not Resolved]
  - Injection site pruritus [Not Recovered/Not Resolved]
  - Blister [Recovering/Resolving]
  - Fatigue [Not Recovered/Not Resolved]
  - Asthenia [Not Recovered/Not Resolved]
  - Swelling face [Recovering/Resolving]
  - Skin exfoliation [Recovering/Resolving]
  - Dry skin [Not Recovered/Not Resolved]
  - Haemoglobin decreased [Not Recovered/Not Resolved]
